FAERS Safety Report 15892607 (Version 1)
Quarter: 2019Q1

REPORT INFORMATION
  Report Type: Report from Study
  Country: US (occurrence: US)
  Receive Date: 20190130
  Receipt Date: 20190130
  Transmission Date: 20190417
  Serious: No
  Sender: FDA-Public Use
  Company Number: US-EXELIXIS-CABO-18017319

PATIENT
  Sex: Male

DRUGS (22)
  1. CRESTOR [Concomitant]
     Active Substance: ROSUVASTATIN CALCIUM
  2. PROCARDIA [Concomitant]
     Active Substance: NIFEDIPINE
  3. ZANAFLEX [Concomitant]
     Active Substance: TIZANIDINE HYDROCHLORIDE
  4. ZOFRAN [Concomitant]
     Active Substance: ONDANSETRON HYDROCHLORIDE
  5. LOFIBRA [Concomitant]
     Active Substance: FENOFIBRATE
  6. COREG [Concomitant]
     Active Substance: CARVEDILOL
  7. DOLOPHINE [Concomitant]
     Active Substance: METHADONE HYDROCHLORIDE
  8. AVAPRO [Concomitant]
     Active Substance: IRBESARTAN
  9. DIGOX [Concomitant]
     Active Substance: DIGOXIN
  10. DILAUDID [Concomitant]
     Active Substance: HYDROMORPHONE HYDROCHLORIDE
  11. INSPRA [Concomitant]
     Active Substance: EPLERENONE
  12. CATAPRES [Concomitant]
     Active Substance: CLONIDINE HYDROCHLORIDE
  13. FLOMAX [Concomitant]
     Active Substance: TAMSULOSIN HYDROCHLORIDE
  14. SUTENT [Concomitant]
     Active Substance: SUNITINIB MALATE
  15. PROTONIX [Concomitant]
     Active Substance: PANTOPRAZOLE SODIUM
  16. JARDIANCE [Concomitant]
     Active Substance: EMPAGLIFLOZIN
  17. DEMADEX [Concomitant]
     Active Substance: TORSEMIDE
  18. SENOKOT [Concomitant]
     Active Substance: SENNOSIDES
  19. GLYCOLAX [Concomitant]
     Active Substance: POLYETHYLENE GLYCOL 3350
  20. CABOMETYX [Suspect]
     Active Substance: CABOZANTINIB S-MALATE
     Indication: RENAL CANCER
     Dosage: 60 MG, QD
     Route: 048
  21. COLACE [Concomitant]
     Active Substance: DOCUSATE SODIUM
  22. ZOLOFT [Concomitant]
     Active Substance: SERTRALINE HYDROCHLORIDE

REACTIONS (4)
  - Depression [Unknown]
  - Skin irritation [Unknown]
  - Oral discomfort [Unknown]
  - Decreased appetite [Not Recovered/Not Resolved]

NARRATIVE: CASE EVENT DATE: 2018
